FAERS Safety Report 10056600 (Version 3)
Quarter: 2014Q2

REPORT INFORMATION
  Report Type: Report from Study
  Country: US (occurrence: US)
  Receive Date: 20140403
  Receipt Date: 20140430
  Transmission Date: 20141212
  Serious: Yes (Death, Other)
  Sender: FDA-Public Use
  Company Number: US-ACTELION-A-NJ2014-96585

PATIENT
  Age: 45 Year
  Sex: Female

DRUGS (3)
  1. MACITENTAN [Suspect]
     Indication: PULMONARY ARTERIAL HYPERTENSION
     Dosage: UNK
     Route: 048
     Dates: start: 20140113, end: 20140317
  2. REVATIO [Concomitant]
  3. TYVASO [Concomitant]

REACTIONS (4)
  - Death [Fatal]
  - Systemic lupus erythematosus [Unknown]
  - Pulmonary thrombosis [Unknown]
  - Pulmonary arterial hypertension [Unknown]
